FAERS Safety Report 24461403 (Version 1)
Quarter: 2024Q4

REPORT INFORMATION
  Report Type: Report from Study
  Country: US (occurrence: US)
  Receive Date: 20241018
  Receipt Date: 20241018
  Transmission Date: 20250115
  Serious: No
  Sender: ROCHE
  Company Number: US-ROCHE-3531467

PATIENT
  Age: 65 Year
  Sex: Female
  Weight: 65.77 kg

DRUGS (6)
  1. RITUXAN [Suspect]
     Active Substance: RITUXIMAB
     Indication: Rheumatoid arthritis
     Route: 041
     Dates: start: 2022
  2. HYDROCODONE [Concomitant]
     Active Substance: HYDROCODONE
     Dosage: 10-325MG FOUR TIMES A DAY
     Route: 048
  3. PLAQUENIL [Concomitant]
     Active Substance: HYDROXYCHLOROQUINE SULFATE
     Route: 048
  4. PREDNISONE [Concomitant]
     Active Substance: PREDNISONE
     Route: 048
  5. VITAMIN D2 [Concomitant]
     Active Substance: ERGOCALCIFEROL
  6. OMEGA 3 [Concomitant]
     Active Substance: CAPSAICIN
     Route: 048

REACTIONS (3)
  - Influenza [Unknown]
  - Pain [Unknown]
  - Fatigue [Unknown]
